FAERS Safety Report 14906983 (Version 1)
Quarter: 2018Q2

REPORT INFORMATION
  Report Type: Spontaneous
  Country: DE (occurrence: DE)
  Receive Date: 20180517
  Receipt Date: 20180517
  Transmission Date: 20180711
  Serious: Yes (Death, Hospitalization, Other)
  Sender: FDA-Public Use
  Company Number: DE-WEST-WARD PHARMACEUTICALS CORP.-DE-H14001-18-03234

PATIENT
  Age: 56 Year
  Sex: Male
  Weight: 83 kg

DRUGS (16)
  1. DEXAMETHASONE. [Concomitant]
     Active Substance: DEXAMETHASONE
     Indication: PROPHYLAXIS
     Route: 041
     Dates: start: 20180311
  2. NOVAMINSULFON [Concomitant]
     Active Substance: METAMIZOLE
     Indication: TUMOUR PAIN
     Route: 048
     Dates: start: 20180311
  3. TORASEMID [Concomitant]
     Active Substance: TORSEMIDE
     Indication: CARDIAC FAILURE
     Route: 048
     Dates: start: 20180328
  4. ABRAXANE [Suspect]
     Active Substance: PACLITAXEL
     Indication: NON-SMALL CELL LUNG CANCER
     Dosage: 100 MILLIGRAM/SQ. METER
     Route: 041
     Dates: start: 20180310
  5. XIPAMID [Concomitant]
     Active Substance: XIPAMIDE
     Indication: CARDIAC FAILURE
     Route: 048
     Dates: start: 20180327
  6. FUROSEMIDE. [Concomitant]
     Active Substance: FUROSEMIDE
     Route: 041
     Dates: start: 20180319, end: 20180326
  7. TRYASOL [Concomitant]
     Indication: COUGH
     Route: 048
     Dates: start: 20180311
  8. ZOPICLON [Concomitant]
     Active Substance: ZOPICLONE
     Indication: INSOMNIA
     Route: 048
     Dates: start: 20180220
  9. ZOFRAN [Concomitant]
     Active Substance: ONDANSETRON HYDROCHLORIDE
     Indication: PROPHYLAXIS
     Route: 041
     Dates: start: 20180311
  10. COTRIM [Concomitant]
     Active Substance: SULFAMETHOXAZOLE\TRIMETHOPRIM
     Indication: PROPHYLAXIS
     Route: 048
     Dates: start: 20180319, end: 20180323
  11. TORASEMID [Concomitant]
     Active Substance: TORSEMIDE
     Route: 048
     Dates: start: 20180329
  12. DEXAMETHASONE. [Concomitant]
     Active Substance: DEXAMETHASONE
     Route: 048
     Dates: start: 20180312
  13. AMPHO MORONAL [Concomitant]
     Active Substance: AMPHOTERICIN B
     Indication: PROPHYLAXIS
     Route: 048
     Dates: start: 20180319, end: 20180329
  14. CARBOPLATIN. [Suspect]
     Active Substance: CARBOPLATIN
     Indication: NON-SMALL CELL LUNG CANCER
     Dosage: 6 MG*MIN/ML
     Route: 041
     Dates: start: 20180310
  15. FUROSEMIDE. [Concomitant]
     Active Substance: FUROSEMIDE
     Indication: CARDIAC FAILURE
     Dosage: 40 MILLIGRAM
     Route: 041
     Dates: start: 20180319
  16. SALINE [Concomitant]
     Active Substance: SODIUM CHLORIDE
     Indication: PROPHYLAXIS
     Route: 041
     Dates: start: 20180311

REACTIONS (4)
  - Death [Fatal]
  - Off label use [Unknown]
  - Thrombocytopenia [Not Recovered/Not Resolved]
  - Leukopenia [Recovered/Resolved]

NARRATIVE: CASE EVENT DATE: 20180319
